FAERS Safety Report 4314025-8 (Version None)
Quarter: 2004Q1

REPORT INFORMATION
  Report Type: 
  Country: None (occurrence: None)
  Receive Date: 20040305
  Receipt Date: 20040226
  Transmission Date: 20041129
  Serious: Yes (Death)
  Sender: FDA-Public Use
  Company Number: GB-JNJFOC-20040105382

PATIENT
  Age: 73 Year
  Sex: Female
  Weight: 72.5755 kg

DRUGS (6)
  1. REOPRO [Suspect]
     Indication: CORONARY ARTERY SURGERY
     Dosage: 12.3 ML, INJECTION
     Dates: start: 20031212
  2. HEPARIN [Concomitant]
  3. ASPIRIN [Concomitant]
  4. GLIPIZIDE [Concomitant]
  5. DILTIAZEM [Concomitant]
  6. CLOPIDOGREL BISULFATE [Concomitant]

REACTIONS (2)
  - COMA [None]
  - HAEMORRHAGE INTRACRANIAL [None]
